FAERS Safety Report 5249822-8 (Version None)
Quarter: 2007Q1

REPORT INFORMATION
  Report Type: 
  Country: None (occurrence: None)
  Receive Date: 20070223
  Receipt Date: 20070212
  Transmission Date: 20070707
  Serious: Yes (Other)
  Sender: FDA-Public Use
  Company Number: 062-20785-06111070

PATIENT
  Age: 38 Year
  Sex: Female

DRUGS (3)
  1. THALIDOMIDE [Suspect]
     Indication: MALIGNANT HISTIOCYTOSIS
     Dosage: 50 MG, 1 IN 1 D, ORAL
     Route: 048
     Dates: start: 20050121
  2. THALIDOMIDE [Suspect]
     Indication: MALIGNANT HISTIOCYTOSIS
     Dosage: ORAL
     Route: 048
     Dates: start: 19930101
  3. CONTRACEPTIVE DRUG [Suspect]

REACTIONS (1)
  - BREAST NEOPLASM [None]
